FAERS Safety Report 9698495 (Version 2)
Quarter: 2016Q1

REPORT INFORMATION
  Report Type: Report from Study
  Country: US (occurrence: US)
  Receive Date: 20131120
  Receipt Date: 20160303
  Transmission Date: 20160526
  Serious: Yes (Other)
  Sender: FDA-Public Use
  Company Number: US-ROCHE-1302728

PATIENT
  Sex: Female

DRUGS (16)
  1. ALTEPLASE [Suspect]
     Active Substance: ALTEPLASE
     Indication: COMPLICATION ASSOCIATED WITH DEVICE
     Route: 065
     Dates: start: 20130729
  2. ALTEPLASE [Suspect]
     Active Substance: ALTEPLASE
     Indication: IMPLANT SITE REACTION
  3. HEPARIN [Concomitant]
     Active Substance: HEPARIN SODIUM
     Dosage: 30UNITS INJECTION
     Route: 065
  4. LACTOBACILLUS [Concomitant]
     Active Substance: LACTOBACILLUS ACIDOPHILUS
     Route: 048
  5. ENOXAPARIN [Concomitant]
     Active Substance: ENOXAPARIN
     Route: 058
  6. ROCEPHIN [Suspect]
     Active Substance: CEFTRIAXONE SODIUM
     Indication: GRAFT COMPLICATION
  7. DAPTOMYCIN. [Concomitant]
     Active Substance: DAPTOMYCIN
     Dosage: IVPB
     Route: 065
  8. NICOTINE. [Concomitant]
     Active Substance: NICOTINE
     Route: 062
  9. ALTEPLASE [Suspect]
     Active Substance: ALTEPLASE
     Indication: GRAFT COMPLICATION
  10. METHADONE [Concomitant]
     Active Substance: METHADONE HYDROCHLORIDE
     Route: 065
  11. DOCUSATE SODIUM. [Concomitant]
     Active Substance: DOCUSATE SODIUM
     Route: 048
  12. ROCEPHIN [Suspect]
     Active Substance: CEFTRIAXONE SODIUM
     Indication: COMPLICATION ASSOCIATED WITH DEVICE
     Route: 040
  13. ESOMEPRAZOLE [Concomitant]
     Active Substance: ESOMEPRAZOLE
     Dosage: QAM AC
     Route: 048
  14. ROCEPHIN [Suspect]
     Active Substance: CEFTRIAXONE SODIUM
     Indication: IMPLANT SITE REACTION
  15. HYDROMORPHONE [Concomitant]
     Active Substance: HYDROMORPHONE
     Route: 048
  16. SENOKOT [Concomitant]
     Active Substance: SENNOSIDES
     Dosage: 2 TABS Q EVENING.
     Route: 048

REACTIONS (8)
  - Scoliosis [Unknown]
  - Necrotising fasciitis [Unknown]
  - Arthralgia [Unknown]
  - Seizure [Unknown]
  - Constipation [Unknown]
  - Diarrhoea [Unknown]
  - Kyphosis [Unknown]
  - Back pain [Not Recovered/Not Resolved]
